FAERS Safety Report 4356187-2 (Version None)
Quarter: 2004Q2

REPORT INFORMATION
  Report Type: 
  Country: None (occurrence: None)
  Receive Date: 20040511
  Receipt Date: 20030314
  Transmission Date: 20050107
  Serious: Yes (Other)
  Sender: FDA-Public Use
  Company Number: PHBS2003GB02993

PATIENT
  Age: 19 Year
  Sex: Female

DRUGS (3)
  1. NEORAL [Suspect]
     Indication: RENAL TRANSPLANT
     Route: 065
  2. SIROLIMUS [Suspect]
     Dosage: 6 MG
     Route: 065
  3. SIROLIMUS [Suspect]
     Dosage: 2 MG/DAY
     Route: 065

REACTIONS (9)
  - BIOPSY KIDNEY ABNORMAL [None]
  - BLOOD CREATININE INCREASED [None]
  - DRUG INTERACTION [None]
  - DRUG LEVEL INCREASED [None]
  - DRUG TOXICITY [None]
  - HAEMOGLOBIN DECREASED [None]
  - NEPHROPATHY [None]
  - PLATELET COUNT DECREASED [None]
  - THROMBOTIC MICROANGIOPATHY [None]
